FAERS Safety Report 8821789 (Version 1)
Quarter: 2012Q4

REPORT INFORMATION
  Report Type: 
  Country: US (occurrence: US)
  Receive Date: 20121002
  Receipt Date: 20121002
  Transmission Date: 20130627
  Serious: No
  Sender: FDA-Public Use
  Company Number: US-009507513-1210USA000402

PATIENT
  Sex: Female

DRUGS (4)
  1. PEGINTRON [Suspect]
     Indication: HEPATITIS C
     Dosage: 120 Microgram, UNK
     Dates: start: 20120525
  2. RIBASPHERE [Suspect]
     Dosage: 1000 mg, qd
  3. RIBASPHERE [Suspect]
     Dosage: 600 mg, qd
  4. RIBASPHERE [Suspect]
     Dosage: 1000 mg, qd

REACTIONS (2)
  - Anaemia [Unknown]
  - Fatigue [Unknown]
